FAERS Safety Report 9775415 (Version 1)
Quarter: 2013Q4

REPORT INFORMATION
  Report Type: Spontaneous
  Country: CL (occurrence: CL)
  Receive Date: 20131220
  Receipt Date: 20131220
  Transmission Date: 20140711
  Serious: Yes (Other)
  Sender: FDA-Public Use
  Company Number: CL-PFIZER INC-2013362728

PATIENT
  Age: 65 Year
  Sex: Male

DRUGS (2)
  1. XALATAN [Suspect]
     Indication: GLAUCOMA
     Dosage: UNK
     Route: 047
     Dates: start: 200912, end: 201310
  2. GLAFORNIL XR [Concomitant]

REACTIONS (2)
  - Gallbladder disorder [Unknown]
  - Drug ineffective [Recovered/Resolved]
